FAERS Safety Report 6661237-4 (Version None)
Quarter: 2010Q1

REPORT INFORMATION
  Report Type: 
  Country: None (occurrence: None)
  Receive Date: 20100331
  Receipt Date: 20100226
  Transmission Date: 20100710
  Serious: Yes (Death, Other)
  Sender: FDA-Public Use
  Company Number: US-BAXTER-2009BH016118

PATIENT
  Age: 44 Year
  Sex: Male
  Weight: 110 kg

DRUGS (15)
  1. HEPARIN SODIUM INJECTION [Suspect]
     Indication: PULMONARY EMBOLISM
     Route: 058
     Dates: start: 20080229, end: 20080310
  2. HEPARIN SODIUM INJECTION [Suspect]
     Route: 042
     Dates: start: 20080301, end: 20080301
  3. HEPARIN SODIUM INJECTION [Suspect]
     Route: 042
     Dates: start: 20080301, end: 20080301
  4. HEPARIN SODIUM INJECTION [Suspect]
     Route: 042
     Dates: start: 20080302, end: 20080302
  5. HEPARIN SODIUM INJECTION [Suspect]
     Route: 042
     Dates: start: 20080302, end: 20080302
  6. HEPARIN SODIUM INJECTION [Suspect]
     Route: 042
     Dates: start: 20080304, end: 20080304
  7. HEPARIN SODIUM [Suspect]
     Indication: THROMBOSIS PROPHYLAXIS
     Route: 041
     Dates: start: 20080301, end: 20080301
  8. LASIX [Concomitant]
     Indication: DRUG USE FOR UNKNOWN INDICATION
     Route: 065
  9. METFORMIN (GLUCOPHAGE) [Concomitant]
     Indication: DRUG USE FOR UNKNOWN INDICATION
     Route: 065
  10. AMARYL [Concomitant]
     Indication: DRUG USE FOR UNKNOWN INDICATION
     Route: 065
  11. WELLBUTRIN [Concomitant]
     Indication: DRUG USE FOR UNKNOWN INDICATION
     Route: 065
  12. POTASSIUM CHLORIDE [Concomitant]
     Indication: DRUG USE FOR UNKNOWN INDICATION
     Route: 065
  13. ASPIRIN [Concomitant]
     Indication: DRUG USE FOR UNKNOWN INDICATION
     Route: 065
  14. LISINOPRIL [Concomitant]
     Indication: DRUG USE FOR UNKNOWN INDICATION
     Route: 065
  15. CARDIZEM [Concomitant]
     Indication: DRUG USE FOR UNKNOWN INDICATION
     Route: 065

REACTIONS (14)
  - ACUTE RESPIRATORY FAILURE [None]
  - BALANCE DISORDER [None]
  - CARDIAC FAILURE [None]
  - DECREASED APPETITE [None]
  - DERMATITIS BULLOUS [None]
  - DIARRHOEA [None]
  - HEADACHE [None]
  - HYPERSENSITIVITY [None]
  - HYPOTENSION [None]
  - HYPOXIA [None]
  - NAUSEA [None]
  - PULMONARY EMBOLISM [None]
  - PULMONARY HYPERTENSION [None]
  - UNRESPONSIVE TO STIMULI [None]
